FAERS Safety Report 6107846-2 (Version None)
Quarter: 2009Q1

REPORT INFORMATION
  Report Type: 
  Country: None (occurrence: None)
  Receive Date: 20090305
  Receipt Date: 20090305
  Transmission Date: 20090719
  Serious: Yes (Other)
  Sender: FDA-Public Use
  Company Number: None

PATIENT
  Age: 31 Year
  Sex: Female
  Weight: 56.6996 kg

DRUGS (1)
  1. METRONIDAZOLE 250MG TAB [Suspect]
     Indication: GIARDIASIS
     Dosage: 250MG  TID PO
     Route: 048
     Dates: start: 20080825, end: 20080828

REACTIONS (1)
  - NEUROPATHY PERIPHERAL [None]
